FAERS Safety Report 4813722-5 (Version None)
Quarter: 2005Q4

REPORT INFORMATION
  Report Type: 
  Country: None (occurrence: None)
  Receive Date: 20051028
  Receipt Date: 20050310
  Transmission Date: 20060501
  Serious: Yes (Hospitalization)
  Sender: FDA-Public Use
  Company Number: US-GLAXOSMITHKLINE-A0549237A

PATIENT
  Age: 76 Year
  Sex: Female

DRUGS (11)
  1. ADVAIR DISKUS 100/50 [Suspect]
     Indication: CHRONIC OBSTRUCTIVE PULMONARY DISEASE
     Dosage: 1PUFF TWICE PER DAY
     Route: 055
  2. XOPENEX [Concomitant]
  3. IPRATROPIUM BROMIDE [Concomitant]
  4. THEOPHYLLINE [Concomitant]
  5. SINGULAIR [Concomitant]
  6. CARTIA XT [Concomitant]
  7. POTASSIUM [Concomitant]
  8. FUROSEMIDE [Concomitant]
  9. ASPIRIN [Concomitant]
  10. DAILY VITAMIN [Concomitant]
  11. CALCIUM GLUCONATE [Concomitant]

REACTIONS (4)
  - CANDIDIASIS [None]
  - DYSPHONIA [None]
  - ILL-DEFINED DISORDER [None]
  - POSTNASAL DRIP [None]
